FAERS Safety Report 6086100-1 (Version None)
Quarter: 2009Q1

REPORT INFORMATION
  Report Type: 
  Country: None (occurrence: None)
  Receive Date: 20090217
  Receipt Date: 20090217
  Transmission Date: 20090719
  Serious: Yes (Other)
  Sender: FDA-Public Use
  Company Number: None

PATIENT
  Age: 41 Year
  Sex: Female
  Weight: 76.2043 kg

DRUGS (2)
  1. SERTRALINE [Suspect]
     Indication: ANXIETY
     Dosage: 50MG  ONE A DAY, TOOK ONE PILL ONLY
     Dates: start: 20090209, end: 20090209
  2. SERTRALINE [Suspect]
     Indication: MENOPAUSE
     Dosage: 50MG  ONE A DAY, TOOK ONE PILL ONLY
     Dates: start: 20090209, end: 20090209

REACTIONS (10)
  - ABNORMAL BEHAVIOUR [None]
  - ANXIETY [None]
  - CRYING [None]
  - FATIGUE [None]
  - HALLUCINATION [None]
  - HEART RATE INCREASED [None]
  - INSOMNIA [None]
  - NAUSEA [None]
  - PANIC ATTACK [None]
  - RETCHING [None]
